FAERS Safety Report 18419824 (Version 1)
Quarter: 2020Q4

REPORT INFORMATION
  Report Type: Report from Study
  Country: AU (occurrence: AU)
  Receive Date: 20201023
  Receipt Date: 20201023
  Transmission Date: 20210114
  Serious: Yes (Other)
  Sender: FDA-Public Use
  Company Number: AU-SA-2020SA284801

PATIENT

DRUGS (3)
  1. RIFAMPICIN [Suspect]
     Active Substance: RIFAMPIN
     Indication: MYCOBACTERIUM ULCERANS INFECTION
     Dosage: 5.7 MG/KG, QD
  2. CLARITHROMYCIN. [Interacting]
     Active Substance: CLARITHROMYCIN
     Indication: MYCOBACTERIUM ULCERANS INFECTION
     Dosage: 9.4 MG/KG, QD
  3. PREDNISOLONE. [Concomitant]
     Active Substance: PREDNISOLONE
     Indication: COLITIS ULCERATIVE
     Dosage: 25 MG, QD

REACTIONS (5)
  - Immune reconstitution inflammatory syndrome [Unknown]
  - Drug interaction [Unknown]
  - Treatment failure [Unknown]
  - Incorrect dose administered [Unknown]
  - Paradoxical drug reaction [Unknown]
